FAERS Safety Report 9522786 (Version 2)
Quarter: 2013Q3

REPORT INFORMATION
  Report Type: Report from Study
  Country: BR (occurrence: BR)
  Receive Date: 20130913
  Receipt Date: 20130920
  Transmission Date: 20140515
  Serious: Yes (Hospitalization, Other)
  Sender: FDA-Public Use
  Company Number: PHHY2013BR098534

PATIENT
  Age: 45 Year
  Sex: Male
  Weight: 85 kg

DRUGS (10)
  1. CARBAMAZEPINE [Suspect]
  2. FORMOTEROL [Suspect]
     Dosage: 24 UG, PER DAY
  3. BUDESONIDE [Suspect]
     Dosage: 400 UG, BID
     Dates: start: 2005
  4. OMEPRAZOLE [Suspect]
     Indication: GASTROOESOPHAGEAL REFLUX DISEASE
     Dosage: 20 MG, DAILY
     Route: 048
     Dates: start: 2005
  5. AZITHROMYCIN [Suspect]
  6. BAMIFYLLINE [Suspect]
  7. SALBUTAMOL [Suspect]
     Dosage: EIGHT PUFFS PER DAY
  8. MONTELUKAST [Suspect]
  9. AMITRIPTYLINE [Suspect]
  10. SYMBICORT [Suspect]
     Dosage: UNK UKN, UNK

REACTIONS (4)
  - Asthma [Recovering/Resolving]
  - Blood immunoglobulin E increased [Recovering/Resolving]
  - Sinusitis [Recovering/Resolving]
  - Sleep disorder [Recovering/Resolving]
